FAERS Safety Report 9174079 (Version 2)
Quarter: 2013Q2

REPORT INFORMATION
  Report Type: Spontaneous
  Country: US (occurrence: None)
  Receive Date: 20130313
  Receipt Date: 20130401
  Transmission Date: 20140414
  Serious: Yes (Life-Threatening, Hospitalization)
  Sender: FDA-Public Use
  Company Number: LMI-2013-00069

PATIENT
  Age: 70 Year
  Sex: Female

DRUGS (12)
  1. DEFINITY [Suspect]
     Indication: ECHOCARDIOGRAM
     Dosage: 1 VIAL DILUTED WITH NORMAL SALINE (2 ML)
     Route: 040
     Dates: start: 20130222, end: 20130222
  2. LIPITOR (ATORVASTATIN CALCIUM) [Concomitant]
  3. LOPRESSOR (METOPROLOL TARTRATE) [Concomitant]
  4. BENADRYL(DIPHENHYDRAMINE HYDROCHLORIDE) [Concomitant]
  5. ATIVAN(LORAZEPAM) [Concomitant]
  6. ESTRADERM(ESTRADIOL) [Concomitant]
  7. ZESTRIL(LISINOPRIL) [Concomitant]
  8. K-DUR(POTASSIUM CHLORIDE) [Concomitant]
  9. ZOFRAN(ONDANSETRON) [Concomitant]
  10. ZYLOPRIM(ALLOPURINOL) [Concomitant]
  11. NORVASC(AMLODIPINE BESILATE) [Concomitant]
  12. ASPIRIN(ACETYLSALICYLIC ACID) [Concomitant]

REACTIONS (4)
  - Feeling hot [None]
  - Pulseless electrical activity [None]
  - Dyspnoea [None]
  - Post procedural complication [None]
